FAERS Safety Report 5312924-1 (Version None)
Quarter: 2007Q2

REPORT INFORMATION
  Report Type: 
  Country: None (occurrence: None)
  Receive Date: 20070430
  Receipt Date: 20070418
  Transmission Date: 20071010
  Serious: Yes (Death, Hospitalization, Other)
  Sender: FDA-Public Use
  Company Number: US-PFIZER INC-2006118823

PATIENT
  Sex: Female
  Weight: 86.2 kg

DRUGS (3)
  1. BEXTRA [Suspect]
     Indication: BACK PAIN
     Route: 048
     Dates: start: 20040810, end: 20050701
  2. BEXTRA [Suspect]
     Indication: ARTHRALGIA
  3. VIOXX [Suspect]
     Route: 048
     Dates: start: 20000101, end: 20040101

REACTIONS (5)
  - ANXIETY [None]
  - ARRHYTHMIA [None]
  - CARDIAC ARREST [None]
  - DEPRESSION [None]
  - MYOCARDIAL INFARCTION [None]
